FAERS Safety Report 21280037 (Version 1)
Quarter: 2022Q3

REPORT INFORMATION
  Report Type: Spontaneous
  Country: DE (occurrence: DE)
  Receive Date: 20220901
  Receipt Date: 20220901
  Transmission Date: 20221027
  Serious: Yes (Hospitalization, Other)
  Sender: FDA-Public Use
  Company Number: DE-ORG100014127-2022000944

PATIENT
  Age: 71 Year
  Sex: Female

DRUGS (10)
  1. LYSODREN [Suspect]
     Active Substance: MITOTANE
     Indication: Product used for unknown indication
     Route: 048
  2. LYSODREN [Suspect]
     Active Substance: MITOTANE
     Indication: Product used for unknown indication
     Route: 048
     Dates: start: 20220512, end: 20220626
  3. NovoRapid 100 IE/ml(insulin aspartat) [Concomitant]
     Indication: Product used for unknown indication
     Dosage: 100 IE/ML
  4. HYDROCORTISONE [Concomitant]
     Active Substance: HYDROCORTISONE
     Indication: Product used for unknown indication
  5. HYDROCORTISONE [Concomitant]
     Active Substance: HYDROCORTISONE
     Indication: Product used for unknown indication
     Dosage: REDUCED TO 30 MG/DAY
  6. CANDESARTAN [Concomitant]
     Active Substance: CANDESARTAN
     Indication: Product used for unknown indication
  7. MOXONIDINE [Concomitant]
     Active Substance: MOXONIDINE
     Indication: Product used for unknown indication
  8. AMLODIPINE BESYLATE [Concomitant]
     Active Substance: AMLODIPINE BESYLATE
     Indication: Product used for unknown indication
  9. VITAMIN D [Concomitant]
     Active Substance: VITAMIN D NOS
     Indication: Product used for unknown indication
     Dosage: 20.000 IE 1/WEEK
  10. Fluticason/Salbutamol 125/5 [Concomitant]
     Indication: Product used for unknown indication
     Dosage: 125/5 3X/DAY

REACTIONS (3)
  - Dementia [Unknown]
  - Confusional state [Unknown]
  - Fatigue [Unknown]

NARRATIVE: CASE EVENT DATE: 20220613
